FAERS Safety Report 9215420 (Version 1)
Quarter: 2013Q2

REPORT INFORMATION
  Report Type: Report from Study
  Country: FR (occurrence: FR)
  Receive Date: 20130405
  Receipt Date: 20130405
  Transmission Date: 20140414
  Serious: Yes (Other)
  Sender: FDA-Public Use
  Company Number: FR-AMGEN-UK319175

PATIENT
  Age: 73 Year
  Sex: Male

DRUGS (5)
  1. DENOSUMAB [Suspect]
     Indication: PROSTATE CANCER
     Dosage: UNK UNK, QD
     Route: 058
     Dates: start: 20071015, end: 200809
  2. CYPROTERONE ACETATE [Concomitant]
  3. DOCETAXEL [Concomitant]
     Dosage: UNK UNK, UNK
     Dates: start: 20080912
  4. CORTICOSTEROID NOS [Concomitant]
     Dosage: UNK UNK, UNK
     Dates: start: 20080912
  5. GOSERELIN [Concomitant]

REACTIONS (1)
  - Osteonecrosis of jaw [Recovered/Resolved]
